FAERS Safety Report 9375629 (Version 2)
Quarter: 2013Q3

REPORT INFORMATION
  Report Type: Spontaneous
  Country: US (occurrence: US)
  Receive Date: 20130628
  Receipt Date: 20130718
  Transmission Date: 20140515
  Serious: Yes (Hospitalization, Disabling, Other)
  Sender: FDA-Public Use
  Company Number: US-009507513-1205USA04970

PATIENT
  Sex: Female
  Weight: 80.73 kg

DRUGS (6)
  1. FOSAMAX [Suspect]
     Indication: OSTEOPOROSIS
     Dosage: 10 MG, UNK
     Route: 048
     Dates: start: 2001, end: 2008
  2. FOSAMAX [Suspect]
     Dosage: 70 MG, UNK
     Route: 048
     Dates: start: 2001, end: 2008
  3. FOSAMAX [Suspect]
     Indication: OSTEOPOROSIS
     Route: 048
  4. ADVAIR [Concomitant]
     Indication: ASTHMA
     Dosage: UNK
     Dates: start: 2001
  5. THEOPHYLLINE [Concomitant]
     Indication: ASTHMA
     Dosage: UNK
     Dates: start: 2001
  6. ALBUTEROL [Concomitant]
     Indication: ASTHMA
     Dosage: UNK
     Dates: start: 2001

REACTIONS (8)
  - Femur fracture [Recovering/Resolving]
  - Intramedullary rod insertion [Unknown]
  - Multiple fractures [Not Recovered/Not Resolved]
  - Osteoporosis [Not Recovered/Not Resolved]
  - Low turnover osteopathy [Not Recovered/Not Resolved]
  - Radius fracture [Unknown]
  - Adverse event [Unknown]
  - Asthma [Unknown]
